FAERS Safety Report 7636111-7 (Version None)
Quarter: 2011Q3

REPORT INFORMATION
  Report Type: 
  Country: None (occurrence: None)
  Receive Date: 20110722
  Receipt Date: 20110722
  Transmission Date: 20111222
  Serious: Yes (Other)
  Sender: FDA-Public Use
  Company Number: None

PATIENT
  Sex: Female
  Weight: 63.5036 kg

DRUGS (1)
  1. EXEMESTANE [Suspect]
     Indication: BREAST CANCER
     Dosage: 7X DAY

REACTIONS (3)
  - HAND FRACTURE [None]
  - PRODUCT SUBSTITUTION ISSUE [None]
  - PATHOLOGICAL FRACTURE [None]
